FAERS Safety Report 13926710 (Version 1)
Quarter: 2017Q3

REPORT INFORMATION
  Report Type: Spontaneous
  Country: US (occurrence: None)
  Receive Date: 20170831
  Receipt Date: 20170831
  Transmission Date: 20171127
  Serious: Yes (Hospitalization)
  Sender: FDA-Public Use
  Company Number: None

PATIENT
  Age: 63 Year
  Sex: Female

DRUGS (21)
  1. ATORVASTATIN [Concomitant]
     Active Substance: ATORVASTATIN
  2. MAGNESIUM [Concomitant]
     Active Substance: MAGNESIUM
  3. VITAMIN B [Concomitant]
     Active Substance: VITAMIN B
  4. PROBIOTIC [Concomitant]
     Active Substance: PROBIOTICS NOS
  5. PREDNISONE. [Concomitant]
     Active Substance: PREDNISONE
  6. FOLIC ACID. [Concomitant]
     Active Substance: FOLIC ACID
  7. LOSARTAN POT [Concomitant]
     Active Substance: LOSARTAN POTASSIUM
  8. MULTI [Concomitant]
  9. LANSOPRAZOLE. [Concomitant]
     Active Substance: LANSOPRAZOLE
  10. METFORMIN [Concomitant]
     Active Substance: METFORMIN HYDROCHLORIDE
  11. VICTOZA [Concomitant]
     Active Substance: LIRAGLUTIDE
  12. CLONAZEPAM. [Concomitant]
     Active Substance: CLONAZEPAM
  13. ENBREL [Suspect]
     Active Substance: ETANERCEPT
     Indication: RHEUMATOID ARTHRITIS
     Route: 058
     Dates: start: 20161230
  14. ULORIC [Concomitant]
     Active Substance: FEBUXOSTAT
  15. VITAMIN C [Concomitant]
     Active Substance: ASCORBIC ACID
  16. CHLORTHALID [Concomitant]
  17. TUMERIC [Concomitant]
     Active Substance: HERBALS\TURMERIC
  18. FREESTYLE [Concomitant]
  19. JUBLIA [Concomitant]
     Active Substance: EFINACONAZOLE
  20. HUMALOG [Concomitant]
     Active Substance: INSULIN LISPRO
  21. MILK THISTLE [Concomitant]
     Active Substance: MILK THISTLE

REACTIONS (2)
  - Malaise [None]
  - Drug dose omission [None]

NARRATIVE: CASE EVENT DATE: 201708
